FAERS Safety Report 19478201 (Version 2)
Quarter: 2021Q3

REPORT INFORMATION
  Report Type: Spontaneous
  Country: US (occurrence: US)
  Receive Date: 20210630
  Receipt Date: 20210721
  Transmission Date: 20211014
  Serious: Yes (Hospitalization, Other)
  Sender: FDA-Public Use
  Company Number: US-PFIZER INC-2021713182

PATIENT
  Age: 72 Year
  Sex: Female
  Weight: 77 kg

DRUGS (1)
  1. PREMPHASE [Suspect]
     Active Substance: ESTROGENS, CONJUGATED\MEDROXYPROGESTERONE ACETATE
     Dosage: 1 DF, 1X/DAY
     Dates: start: 199904

REACTIONS (9)
  - Eating disorder [Unknown]
  - Drug dependence [Unknown]
  - Hypertension [Unknown]
  - Dizziness [Unknown]
  - Anxiety [Unknown]
  - Insomnia [Unknown]
  - Road traffic accident [Unknown]
  - Dyspnoea [Unknown]
  - Vomiting [Unknown]
